FAERS Safety Report 23399288 (Version 3)
Quarter: 2025Q1

REPORT INFORMATION
  Report Type: Report from Study
  Country: US (occurrence: US)
  Receive Date: 20240113
  Receipt Date: 20250130
  Transmission Date: 20250408
  Serious: Yes (Hospitalization, Other)
  Sender: ABBVIE
  Company Number: US-ABBVIE-5582769

PATIENT
  Sex: Male

DRUGS (3)
  1. SKYRIZI [Suspect]
     Active Substance: RISANKIZUMAB-RZAA
     Indication: Psoriasis
     Route: 058
     Dates: start: 20231107, end: 202312
  2. SKYRIZI [Suspect]
     Active Substance: RISANKIZUMAB-RZAA
     Indication: Psoriasis
     Route: 058
     Dates: start: 202410, end: 202410
  3. SKYRIZI [Suspect]
     Active Substance: RISANKIZUMAB-RZAA
     Route: 058
     Dates: start: 202411, end: 202411

REACTIONS (5)
  - Gastrointestinal haemorrhage [Recovering/Resolving]
  - Nephrolithiasis [Not Recovered/Not Resolved]
  - Perforated ulcer [Recovering/Resolving]
  - Kidney infection [Recovered/Resolved]
  - Sepsis [Recovered/Resolved]
